FAERS Safety Report 11106213 (Version 3)
Quarter: 2016Q1

REPORT INFORMATION
  Report Type: Spontaneous
  Country: US (occurrence: US)
  Receive Date: 20150512
  Receipt Date: 20160322
  Transmission Date: 20160525
  Serious: Yes (Other)
  Sender: FDA-Public Use
  Company Number: US-JNJFOC-20150506072

PATIENT
  Sex: Male

DRUGS (1)
  1. RISPERDAL [Suspect]
     Active Substance: RISPERIDONE
     Indication: SELF INJURIOUS BEHAVIOUR
     Route: 048
     Dates: start: 2004, end: 2008

REACTIONS (5)
  - Tardive dyskinesia [Unknown]
  - Gynaecomastia [Unknown]
  - Off label use [Unknown]
  - Extrapyramidal disorder [Unknown]
  - Product use issue [Unknown]

NARRATIVE: CASE EVENT DATE: 2004
